FAERS Safety Report 21543031 (Version 1)
Quarter: 2022Q4

REPORT INFORMATION
  Report Type: Spontaneous
  Country: US (occurrence: US)
  Receive Date: 20221102
  Receipt Date: 20221102
  Transmission Date: 20230113
  Serious: No
  Sender: FDA-Public Use
  Company Number: US-SA-SAC20221029001104

PATIENT
  Age: 29 Year
  Sex: Female

DRUGS (2)
  1. CABLIVI [Suspect]
     Active Substance: CAPLACIZUMAB-YHDP
     Indication: Thrombotic microangiopathy
     Dosage: 11 MG, QD
     Route: 058
     Dates: start: 20221007
  2. RITUXAN [Suspect]
     Active Substance: RITUXIMAB

REACTIONS (8)
  - Tremor [Unknown]
  - Hypermetropia [Unknown]
  - Condition aggravated [Unknown]
  - Balance disorder [Unknown]
  - Flushing [Recovering/Resolving]
  - Erythema [Recovering/Resolving]
  - Rash erythematous [Recovering/Resolving]
  - Product use in unapproved indication [Unknown]

NARRATIVE: CASE EVENT DATE: 20221001
